FAERS Safety Report 4509669-4 (Version None)
Quarter: 2004Q4

REPORT INFORMATION
  Report Type: 
  Country: None (occurrence: None)
  Receive Date: 20041124
  Receipt Date: 20010618
  Transmission Date: 20050328
  Serious: Yes (Other)
  Sender: FDA-Public Use
  Company Number: PHBS2001SE06199

PATIENT
  Age: 27 Year
  Sex: Male

DRUGS (4)
  1. TEGRETOL [Suspect]
     Indication: NEURALGIA
     Dosage: 400 MG/DAY
     Route: 048
     Dates: start: 20000501, end: 20001201
  2. NEURONTIN [Concomitant]
  3. CORTISONE [Concomitant]
  4. CLARITIN [Concomitant]
     Route: 048

REACTIONS (3)
  - DRUG INEFFECTIVE [None]
  - GENITAL PAIN MALE [None]
  - HYPERAESTHESIA [None]
